FAERS Safety Report 14028664 (Version 1)
Quarter: 2017Q3

REPORT INFORMATION
  Report Type: Spontaneous
  Country: US (occurrence: US)
  Receive Date: 20170930
  Receipt Date: 20170930
  Transmission Date: 20171128
  Serious: No
  Sender: FDA-Public Use
  Company Number: US-SA-2017SA064900

PATIENT
  Age: 60 Year
  Sex: Female

DRUGS (13)
  1. TRIAMTERENE. [Concomitant]
     Active Substance: TRIAMTERENE
  2. XANAX [Concomitant]
     Active Substance: ALPRAZOLAM
  3. KADIAN [Concomitant]
     Active Substance: MORPHINE SULFATE
  4. ZOLPIDEM TARTRATE. [Concomitant]
     Active Substance: ZOLPIDEM TARTRATE
  5. POTASSIUM CHLORIDE. [Concomitant]
     Active Substance: POTASSIUM CHLORIDE
  6. PROVENTIL [Concomitant]
     Active Substance: ALBUTEROL
  7. LEVOTHYROXINE SODIUM. [Concomitant]
     Active Substance: LEVOTHYROXINE SODIUM
  8. HYDROCODONE/PARACETAMOL [Concomitant]
  9. ARIPIPRAZOLE. [Concomitant]
     Active Substance: ARIPIPRAZOLE
  10. ALBUTEROL. [Concomitant]
     Active Substance: ALBUTEROL
  11. NUVIGIL [Concomitant]
     Active Substance: ARMODAFINIL
  12. AUBAGIO [Suspect]
     Active Substance: TERIFLUNOMIDE
     Indication: MULTIPLE SCLEROSIS
     Route: 048
  13. PREMPRO [Concomitant]
     Active Substance: ESTROGENS, CONJUGATED\MEDROXYPROGESTERONE ACETATE

REACTIONS (5)
  - Condition aggravated [Unknown]
  - Gait disturbance [Unknown]
  - Muscular weakness [Unknown]
  - Pain in extremity [Unknown]
  - Poor quality sleep [Unknown]
